FAERS Safety Report 5507142-8 (Version None)
Quarter: 2007Q4

REPORT INFORMATION
  Report Type: 
  Country: None (occurrence: None)
  Receive Date: 20071105
  Receipt Date: 20071025
  Transmission Date: 20080405
  Serious: Yes (Other)
  Sender: FDA-Public Use
  Company Number: CH-GILEAD-2007-0013486

PATIENT
  Age: 17 Year
  Sex: Male

DRUGS (5)
  1. VIREAD [Suspect]
     Route: 048
     Dates: start: 20030217, end: 20031105
  2. NORVIR [Suspect]
     Route: 048
     Dates: start: 20030217, end: 20031105
  3. VIDEX [Suspect]
     Route: 048
     Dates: start: 20030217, end: 20031105
  4. FORTOVASE [Suspect]
     Route: 048
     Dates: start: 20030217, end: 20031105
  5. FORMOLINE L112 [Suspect]
     Route: 048
     Dates: start: 20030701, end: 20031027

REACTIONS (3)
  - DRUG INTERACTION [None]
  - MULTIPLE-DRUG RESISTANCE [None]
  - THERAPEUTIC RESPONSE DECREASED [None]
